FAERS Safety Report 20081834 (Version 1)
Quarter: 2021Q4

REPORT INFORMATION
  Report Type: Spontaneous
  Country: DE (occurrence: DE)
  Receive Date: 20211117
  Receipt Date: 20211117
  Transmission Date: 20220304
  Serious: Yes (Hospitalization, Other)
  Sender: FDA-Public Use
  Company Number: DE-ADRED-07254-01

PATIENT
  Age: 58 Year
  Sex: Male
  Weight: 107 kg

DRUGS (6)
  1. CARBIDOPA\LEVODOPA [Suspect]
     Active Substance: CARBIDOPA\LEVODOPA
     Indication: Product used for unknown indication
     Dosage: UNK (25/100 MG, 0.5-0.5-0.5-0.5, TABLETTEN)
     Route: 048
  2. CARBIDOPA\LEVODOPA [Suspect]
     Active Substance: CARBIDOPA\LEVODOPA
     Indication: Product used for unknown indication
     Dosage: UNK (25/100 MG, 1-1-1-1, RETARD-TABLETTEN)
     Route: 048
  3. AMANTADINE [Suspect]
     Active Substance: AMANTADINE
     Indication: Product used for unknown indication
     Dosage: UNK (100 MG, 1-1-1-0, TABLETTEN)
     Route: 048
  4. REQUIP XL [Concomitant]
     Active Substance: ROPINIROLE HYDROCHLORIDE
     Dosage: UNK (4 MG, 0-1-0-0, RETARD-TABLETTEN)
     Route: 048
  5. REQUIP XL [Concomitant]
     Active Substance: ROPINIROLE HYDROCHLORIDE
     Dosage: UNK (8 MG, 1-0-0-0, RETARD-TABLETTEN)
     Route: 048
  6. CLOPIDOGREL [Concomitant]
     Active Substance: CLOPIDOGREL BISULFATE
     Dosage: UNK (75 MG, TABLETTEN)
     Route: 048

REACTIONS (5)
  - Apnoea [Unknown]
  - Chest discomfort [Unknown]
  - Atrial fibrillation [Unknown]
  - Hypertension [Unknown]
  - Dyspnoea exertional [Unknown]
